FAERS Safety Report 6912328-1 (Version None)
Quarter: 2010Q3

REPORT INFORMATION
  Report Type: 
  Country: None (occurrence: None)
  Receive Date: 20100806
  Receipt Date: 20080516
  Transmission Date: 20110219
  Serious: No
  Sender: FDA-Public Use
  Company Number: US-PFIZER INC-2008020286

PATIENT
  Sex: Male

DRUGS (2)
  1. DETROL LA [Suspect]
     Indication: NOCTURIA
     Route: 048
     Dates: start: 20080201
  2. LOVASTATIN [Concomitant]

REACTIONS (1)
  - DRUG INEFFECTIVE [None]
